FAERS Safety Report 8779667 (Version 1)
Quarter: 2012Q4

REPORT INFORMATION
  Report Type: 
  Country: US (occurrence: US)
  Receive Date: 20120912
  Receipt Date: 20120912
  Transmission Date: 20130627
  Serious: Yes (Other)
  Sender: FDA-Public Use
  Company Number: US-JNJFOC-20120902277

PATIENT

DRUGS (1)
  1. BENGAY ARTHRITIS PAIN RELIEVING [Suspect]
     Indication: ACCIDENTAL EXPOSURE TO PRODUCT
     Route: 061

REACTIONS (4)
  - Acidosis [Unknown]
  - Adverse event [Unknown]
  - Accidental exposure to product [Unknown]
  - Accidental exposure to product by child [None]
